FAERS Safety Report 5063356-5 (Version None)
Quarter: 2006Q3

REPORT INFORMATION
  Report Type: 
  Country: None (occurrence: None)
  Receive Date: 20060703
  Receipt Date: 20051117
  Transmission Date: 20061208
  Serious: No
  Sender: FDA-Public Use
  Company Number: 2005S1011230

PATIENT
  Age: 48 Year
  Sex: Female
  Weight: 39.9165 kg

DRUGS (4)
  1. CLOZAPINE [Suspect]
     Indication: MAJOR DEPRESSION
     Dosage: 100 MG;HS;PO
     Route: 048
     Dates: start: 20050924
  2. ZIPRASIDONE HCL [Concomitant]
  3. LAMOTRIGINE [Concomitant]
  4. LORAZEPAM [Concomitant]

REACTIONS (1)
  - GRANULOCYTOPENIA [None]
